FAERS Safety Report 4842754-6 (Version None)
Quarter: 2005Q4

REPORT INFORMATION
  Report Type: 
  Country: None (occurrence: None)
  Receive Date: 20051129
  Receipt Date: 20051026
  Transmission Date: 20060501
  Serious: No
  Sender: FDA-Public Use
  Company Number: 1842

PATIENT
  Age: 17 Year
  Sex: Male
  Weight: 86.1834 kg

DRUGS (2)
  1. AMNESTEEM [Suspect]
     Indication: ACNE
     Dosage: 20MG, BID, PO
     Dates: start: 20050516, end: 20051014
  2. CLARITIN, PRN FOR HAY FEVER [Concomitant]

REACTIONS (2)
  - IRRITABILITY [None]
  - MOOD SWINGS [None]
